FAERS Safety Report 19756220 (Version 1)
Quarter: 2021Q3

REPORT INFORMATION
  Report Type: Spontaneous
  Country: GB (occurrence: GB)
  Receive Date: 20210827
  Receipt Date: 20210827
  Transmission Date: 20211014
  Serious: Yes (Other)
  Sender: FDA-Public Use
  Company Number: GB-TEVA-2021-GB-1945757

PATIENT
  Age: 29 Year
  Sex: Female
  Weight: 75 kg

DRUGS (9)
  1. ONDANSETRON [Suspect]
     Active Substance: ONDANSETRON
     Dosage: 8MG
     Route: 065
     Dates: start: 20210803
  2. AMOXICILLIN. [Concomitant]
     Active Substance: AMOXICILLIN
     Dosage: 3 DOSAGE FORMS DAILY;
     Dates: start: 20210721, end: 20210726
  3. NAPROXEN. [Concomitant]
     Active Substance: NAPROXEN
     Dosage: 2 DOSAGE FORMS DAILY; INSTEAD OF IBUPROFEN
     Dates: start: 20210505, end: 20210602
  4. NITROFURANTOIN. [Concomitant]
     Active Substance: NITROFURANTOIN
     Dosage: 2 DOSAGE FORMS DAILY;
     Dates: start: 20210721, end: 20210721
  5. MACROGOL [Concomitant]
     Active Substance: POLYETHYLENE GLYCOLS
     Dosage: 2 DOSAGE FORMS DAILY; INCREASE TO BOWELS
     Dates: start: 20210730
  6. LANSOPRAZOLE. [Concomitant]
     Active Substance: LANSOPRAZOLE
     Dosage: 1 DOSAGE FORMS DAILY;
     Dates: start: 20210730
  7. DIAZEPAM. [Concomitant]
     Active Substance: DIAZEPAM
     Dosage: UP TO 2 TABLETS
     Dates: start: 20210803
  8. MEFENAMIC ACID. [Concomitant]
     Active Substance: MEFENAMIC ACID
     Dosage: 3 DOSAGE FORMS DAILY; DURING PERIOD
     Dates: start: 20210324, end: 20210723
  9. METFORMIN [Concomitant]
     Active Substance: METFORMIN HYDROCHLORIDE
     Dosage: 4 DOSAGE FORMS DAILY;  (DOSE TO BE TAKEN WITH BRE...
     Dates: start: 20210222

REACTIONS (3)
  - Dysphemia [Unknown]
  - Serotonin syndrome [Recovering/Resolving]
  - Tremor [Unknown]

NARRATIVE: CASE EVENT DATE: 20210803
